FAERS Safety Report 13392624 (Version 1)
Quarter: 2017Q1

REPORT INFORMATION
  Report Type: Spontaneous
  Country: CA (occurrence: CA)
  Receive Date: 20170331
  Receipt Date: 20170331
  Transmission Date: 20170429
  Serious: Yes (Other)
  Sender: FDA-Public Use
  Company Number: CA-TEVA-753972ACC

PATIENT

DRUGS (1)
  1. COPAXONE [Suspect]
     Active Substance: GLATIRAMER ACETATE
     Indication: PRODUCT USED FOR UNKNOWN INDICATION
     Dosage: COPAXONE (DON^T KNOW IF ITS 20 MG/ML OR 40 MG/ML))
     Route: 065

REACTIONS (2)
  - Lymphadenopathy mediastinal [Unknown]
  - Sarcoidosis [Unknown]
